FAERS Safety Report 14277307 (Version 1)
Quarter: 2017Q4

REPORT INFORMATION
  Report Type: Spontaneous
  Country: IT (occurrence: IT)
  Receive Date: 20171212
  Receipt Date: 20171212
  Transmission Date: 20180321
  Serious: Yes (Death, Life-Threatening, Hospitalization, Other)
  Sender: FDA-Public Use
  Company Number: IT-DENTSPLY-2017SCDP000112

PATIENT
  Age: 17 Day
  Sex: Male
  Weight: .6 kg

DRUGS (1)
  1. CHLORHEXIDINE GLUCONATE. [Suspect]
     Active Substance: CHLORHEXIDINE GLUCONATE
     Indication: INFECTION PROPHYLAXIS
     Dosage: 2 %, UNK
     Route: 061

REACTIONS (3)
  - Chemical burn of skin [Unknown]
  - Sepsis [Fatal]
  - Condition aggravated [Unknown]
